FAERS Safety Report 9149357 (Version 2)
Quarter: 2013Q1

REPORT INFORMATION
  Report Type: Spontaneous
  Country: TW (occurrence: TW)
  Receive Date: 20130308
  Receipt Date: 20130327
  Transmission Date: 20140127
  Serious: No
  Sender: FDA-Public Use
  Company Number: TW-BRISTOL-MYERS SQUIBB COMPANY-17425463

PATIENT
  Sex: 0

DRUGS (1)
  1. BARACLUDE [Suspect]
     Dates: start: 201204

REACTIONS (3)
  - Pneumaturia [Unknown]
  - Creatinine urine increased [Unknown]
  - Albuminuria [Unknown]
